FAERS Safety Report 20457460 (Version 1)
Quarter: 2022Q1

REPORT INFORMATION
  Report Type: Spontaneous
  Country: US (occurrence: US)
  Receive Date: 20220210
  Receipt Date: 20220210
  Transmission Date: 20220423
  Serious: No
  Sender: FDA-Public Use
  Company Number: US-JNJFOC-20220207125

PATIENT
  Age: 52 Year
  Sex: Female

DRUGS (2)
  1. STELARA [Interacting]
     Active Substance: USTEKINUMAB
     Indication: Crohn^s disease
     Route: 058
  2. STELARA [Interacting]
     Active Substance: USTEKINUMAB

REACTIONS (1)
  - Alcohol intolerance [Not Recovered/Not Resolved]

NARRATIVE: CASE EVENT DATE: 20211201
